FAERS Safety Report 5332453-9 (Version None)
Quarter: 2007Q2

REPORT INFORMATION
  Report Type: 
  Country: None (occurrence: None)
  Receive Date: 20070523
  Receipt Date: 20070514
  Transmission Date: 20071010
  Serious: Yes (Hospitalization)
  Sender: FDA-Public Use
  Company Number: FR-ASTRAZENECA-2007CG00762

PATIENT
  Age: 86 Year
  Sex: Female

DRUGS (6)
  1. CRESTOR [Suspect]
     Route: 048
     Dates: end: 20070301
  2. ALDACTAZINE [Suspect]
     Route: 048
     Dates: end: 20070301
  3. DI-ANTALVIC [Suspect]
     Route: 048
     Dates: end: 20070301
  4. PRAXILENE [Suspect]
     Route: 048
     Dates: end: 20070301
  5. SECTRAL [Suspect]
     Route: 048
     Dates: end: 20070301
  6. TANAKAN [Suspect]
     Route: 048
     Dates: end: 20070301

REACTIONS (4)
  - AGGRESSION [None]
  - AGITATION [None]
  - HEPATITIS CHOLESTATIC [None]
  - JAUNDICE [None]
